FAERS Safety Report 18697460 (Version 2)
Quarter: 2021Q1

REPORT INFORMATION
  Report Type: Report from Study
  Country: US (occurrence: US)
  Receive Date: 20210104
  Receipt Date: 20210312
  Transmission Date: 20210419
  Serious: Yes (Other)
  Sender: FDA-Public Use
  Company Number: US-BAYER-2020-286452

PATIENT
  Age: 81 Year
  Sex: Male

DRUGS (23)
  1. ACARBOSE. [Concomitant]
     Active Substance: ACARBOSE
     Dosage: 50 MG, TID WITH MEALS
     Route: 048
  2. AMIODARONE [Concomitant]
     Active Substance: AMIODARONE
     Dosage: 100 MG, BID
  3. ESOMEPRAZOLE. [Concomitant]
     Active Substance: ESOMEPRAZOLE MAGNESIUM
  4. RANOLAZINE. [Concomitant]
     Active Substance: RANOLAZINE
     Dosage: 500 MG, BID
     Route: 048
  5. NEBIVOLOL. [Concomitant]
     Active Substance: NEBIVOLOL
     Dosage: 2.5 MG EVERY MORNING
     Route: 048
  6. DUTASTERIDE. [Concomitant]
     Active Substance: DUTASTERIDE
     Dosage: 0.5 MG NIGHTLY
     Route: 048
  7. EZETIMIBE. [Concomitant]
     Active Substance: EZETIMIBE
     Dosage: 10 MG NIGHTLY
     Route: 048
  8. FUROSEMIDE. [Concomitant]
     Active Substance: FUROSEMIDE
     Dosage: 20 MG, PRN
  9. ROSUVASTATIN. [Concomitant]
     Active Substance: ROSUVASTATIN
     Dosage: 20 MG EVERY MORNING
  10. SILODOSIN. [Concomitant]
     Active Substance: SILODOSIN
     Dosage: 8 MG NIGHTLY
     Route: 048
  11. XOFIGO [Suspect]
     Active Substance: RADIUM RA-223 DICHLORIDE
     Indication: HORMONE-REFRACTORY PROSTATE CANCER
     Dosage: UNK
     Dates: start: 20201228, end: 20201228
  12. FERROUS SULFATE. [Concomitant]
     Active Substance: FERROUS SULFATE
     Dosage: 325 MG EVERY MORNING
     Route: 048
  13. FOLIC ACID. [Concomitant]
     Active Substance: FOLIC ACID
     Dosage: 1 MG EVERY MORNING
     Route: 048
  14. MONTELUKAST [Concomitant]
     Active Substance: MONTELUKAST SODIUM
     Dosage: 10 MG NIGHTLY
     Route: 048
  15. NITROFURANTOIN MONOHYDRATE [Concomitant]
     Active Substance: NITROFURANTOIN MONOHYDRATE
     Dosage: 1 DF, BID FOR 7 DAYS
     Route: 048
  16. TADALAFIL. [Concomitant]
     Active Substance: TADALAFIL
     Dosage: 5 MG NIGHTLY
     Route: 048
  17. ACETAMINOPHEN. [Concomitant]
     Active Substance: ACETAMINOPHEN
     Dosage: 1000 MG, QID FOR 3 DAYS
     Route: 048
  18. ALPRAZOLAM. [Concomitant]
     Active Substance: ALPRAZOLAM
     Dosage: 0.25 MG NIGHTLY
     Route: 048
  19. LEVOTHYROXINE. [Concomitant]
     Active Substance: LEVOTHYROXINE
     Dosage: 50 MCG EVERY MORNING
  20. SODIUM CHLORIDE. [Concomitant]
     Active Substance: SODIUM CHLORIDE
     Dosage: 1 G, TID
     Route: 048
  21. XOFIGO [Suspect]
     Active Substance: RADIUM RA-223 DICHLORIDE
     Indication: HORMONE-REFRACTORY PROSTATE CANCER
     Dosage: 94.90 ?CI, Q4WK
     Dates: start: 20200722, end: 20200722
  22. LOTEPREDNOL [Concomitant]
     Active Substance: LOTEPREDNOL
     Dosage: ADMINISTER 1 DROP INTO BOTH EYES AS
  23. TRADJENTA [Concomitant]
     Active Substance: LINAGLIPTIN
     Dosage: 5 MG, QD
     Route: 048

REACTIONS (6)
  - Haemoglobin decreased [None]
  - Pollakiuria [None]
  - Paraesthesia [None]
  - Haematocrit decreased [None]
  - Prostatic specific antigen increased [None]
  - Blood count abnormal [Unknown]

NARRATIVE: CASE EVENT DATE: 20201009
